FAERS Safety Report 9155053 (Version 1)
Quarter: 2013Q1

REPORT INFORMATION
  Report Type: Spontaneous
  Country: JP (occurrence: None)
  Receive Date: 20130208
  Receipt Date: 20130208
  Transmission Date: 20140127
  Serious: Yes (Life-Threatening)
  Sender: FDA-Public Use
  Company Number: SPI201300054

PATIENT
  Age: 76 Year
  Sex: Female

DRUGS (5)
  1. AMITIZA (LUBIPROSTONE) CAPSULE, 24MCG [Suspect]
     Indication: CONSTIPATION
     Route: 048
     Dates: start: 20121227
  2. VALTAREL F (TRIMETAZIDINE HYDROCHLORIDE) [Concomitant]
  3. EPADEL (ETHYL ICOSAPENTATE) [Concomitant]
  4. CRESTOR (ROSUVASTATIN) [Concomitant]
  5. MYSLEE (ZOLPIDEM TARTRATE) [Concomitant]

REACTIONS (4)
  - Anaphylactic shock [None]
  - Incontinence [None]
  - Loss of consciousness [None]
  - Syncope [None]
